FAERS Safety Report 4487102-9 (Version None)
Quarter: 2004Q4

REPORT INFORMATION
  Report Type: 
  Country: None (occurrence: None)
  Receive Date: 20041027
  Receipt Date: 20041020
  Transmission Date: 20050328
  Serious: Yes (Death, Hospitalization)
  Sender: FDA-Public Use
  Company Number: FR-GLAXOSMITHKLINE-B0348678A

PATIENT
  Age: 72 Year
  Sex: Male

DRUGS (6)
  1. CLAMOXYL [Suspect]
     Indication: PHARYNGITIS
     Route: 048
     Dates: start: 20040827, end: 20040901
  2. ZYLORIC [Suspect]
     Indication: ILL-DEFINED DISORDER
     Dosage: 200MG PER DAY
     Route: 048
     Dates: start: 20040615, end: 20040906
  3. ROCEPHIN [Suspect]
     Indication: PHARYNGITIS
     Route: 030
     Dates: end: 20040905
  4. VASTEN [Concomitant]
  5. COTAREG [Concomitant]
  6. SECTRAL [Concomitant]
     Route: 048

REACTIONS (19)
  - CONJUNCTIVAL HYPERAEMIA [None]
  - COUGH [None]
  - DEATH [None]
  - DERMATITIS BULLOUS [None]
  - HYPERSENSITIVITY [None]
  - HYPOALBUMINAEMIA [None]
  - ILL-DEFINED DISORDER [None]
  - MUCOUS MEMBRANE DISORDER [None]
  - NEPHROTIC SYNDROME [None]
  - OEDEMA PERIPHERAL [None]
  - PNEUMONIA ASPIRATION [None]
  - PROTEIN URINE PRESENT [None]
  - PURPURA [None]
  - PYREXIA [None]
  - RALES [None]
  - RASH GENERALISED [None]
  - RENAL FAILURE CHRONIC [None]
  - STEVENS-JOHNSON SYNDROME [None]
  - TOXIC SKIN ERUPTION [None]
